FAERS Safety Report 26091941 (Version 2)
Quarter: 2025Q4

REPORT INFORMATION
  Report Type: Spontaneous
  Country: US (occurrence: US)
  Receive Date: 20251126
  Receipt Date: 20251223
  Transmission Date: 20260118
  Serious: No
  Sender: ROCHE
  Company Number: US-ROCHE-10000134165

PATIENT
  Sex: Female

DRUGS (2)
  1. XOLAIR PFS [Suspect]
     Active Substance: OMALIZUMAB
     Indication: Asthma
     Dosage: STRENGTH: 300MG/2ML
     Route: 058
     Dates: start: 202305
  2. XOLAIR PFS [Suspect]
     Active Substance: OMALIZUMAB

REACTIONS (3)
  - Rash [Unknown]
  - Swelling face [Unknown]
  - Lip swelling [Unknown]
